FAERS Safety Report 9863064 (Version 1)
Quarter: 2014Q1

REPORT INFORMATION
  Report Type: Spontaneous
  Country: US (occurrence: US)
  Receive Date: 20140203
  Receipt Date: 20140203
  Transmission Date: 20141002
  Serious: No
  Sender: FDA-Public Use
  Company Number: US-TEVA-457191USA

PATIENT
  Age: 52 Year
  Sex: Female
  Weight: 69.46 kg

DRUGS (7)
  1. PROAIR HFA [Suspect]
     Indication: COUGH
     Dates: start: 20140114
  2. PROAIR HFA [Suspect]
     Indication: INFLUENZA
  3. NASONEX [Suspect]
  4. RELPAX [Concomitant]
     Indication: MIGRAINE
     Dosage: PRN
  5. PREVACID [Concomitant]
     Indication: GASTROOESOPHAGEAL REFLUX DISEASE
     Dosage: QAM
     Route: 048
  6. VITAMINS [Concomitant]
     Indication: VITAMIN SUPPLEMENTATION
  7. CRESTOR [Concomitant]
     Indication: BLOOD CHOLESTEROL INCREASED
     Dosage: QHS
     Route: 048

REACTIONS (10)
  - Headache [Recovered/Resolved]
  - Headache [Recovered/Resolved]
  - Hyperhidrosis [Recovered/Resolved]
  - Nausea [Recovered/Resolved]
  - Vomiting [Recovered/Resolved]
  - Migraine [Recovered/Resolved]
  - Feeling abnormal [Recovered/Resolved]
  - Burning sensation [Unknown]
  - Dysgeusia [Unknown]
  - Dysgeusia [Unknown]
